FAERS Safety Report 25100099 (Version 2)
Quarter: 2025Q1

REPORT INFORMATION
  Report Type: Spontaneous
  Country: NL (occurrence: NL)
  Receive Date: 20250320
  Receipt Date: 20250331
  Transmission Date: 20250409
  Serious: Yes (Other)
  Sender: TEVA
  Company Number: None

PATIENT
  Age: 81 Year
  Sex: Male
  Weight: 90 kg

DRUGS (2)
  1. TAMSULOSIN [Suspect]
     Active Substance: TAMSULOSIN
     Indication: Nocturia
     Dosage: 1 PER DAY, TABLET MGA / BRAND NAME NOT SPECIFIED
     Route: 048
     Dates: start: 20240111
  2. MIRABEGRON [Suspect]
     Active Substance: MIRABEGRON
     Indication: Nocturia
     Dosage: 1 PER DAY; TABLET MGA / TABLET MVA
     Route: 048
     Dates: start: 20240111, end: 20240730

REACTIONS (1)
  - Erectile dysfunction [Not Recovered/Not Resolved]
